FAERS Safety Report 7760550-7 (Version None)
Quarter: 2011Q3

REPORT INFORMATION
  Report Type: 
  Country: None (occurrence: None)
  Receive Date: 20110919
  Receipt Date: 20110909
  Transmission Date: 20111222
  Serious: Yes (Death, Hospitalization)
  Sender: FDA-Public Use
  Company Number: US-CELGENEUS-163-20785-11072870

PATIENT
  Sex: Female

DRUGS (4)
  1. THALOMID [Suspect]
     Dosage: 50 MILLIGRAM
     Route: 048
     Dates: start: 20060401
  2. THALOMID [Suspect]
     Dosage: 150 MILLIGRAM
     Route: 048
     Dates: start: 20081101, end: 20110701
  3. THALOMID [Suspect]
     Indication: SYSTEMIC LUPUS ERYTHEMATOSUS
     Dosage: 150 MILLIGRAM
     Route: 048
     Dates: start: 20040801, end: 20060101
  4. THALOMID [Suspect]
     Dosage: 50-150 MG
     Route: 048
     Dates: start: 20060501, end: 20080101

REACTIONS (1)
  - NON-SMALL CELL LUNG CANCER METASTATIC [None]
